FAERS Safety Report 7554313-5 (Version None)
Quarter: 2011Q2

REPORT INFORMATION
  Report Type: 
  Country: None (occurrence: None)
  Receive Date: 20110617
  Receipt Date: 20110614
  Transmission Date: 20111010
  Serious: Yes (Other)
  Sender: FDA-Public Use
  Company Number: US-SHIRE-SPV1-2011-00705

PATIENT
  Sex: Female
  Weight: 65.76 kg

DRUGS (1)
  1. VYVANSE [Suspect]
     Indication: ATTENTION DEFICIT/HYPERACTIVITY DISORDER
     Dosage: 40 MG, 1X/DAY:QD
     Route: 048
     Dates: start: 20110425, end: 20110425

REACTIONS (15)
  - ABDOMINAL PAIN UPPER [None]
  - LETHARGY [None]
  - CONFUSIONAL STATE [None]
  - PANIC ATTACK [None]
  - HALLUCINATION [None]
  - HEART RATE INCREASED [None]
  - ANXIETY [None]
  - MUSCLE CONTRACTIONS INVOLUNTARY [None]
  - DIZZINESS [None]
  - NAUSEA [None]
  - BALANCE DISORDER [None]
  - EYE MOVEMENT DISORDER [None]
  - DYSPNOEA [None]
  - PARAESTHESIA [None]
  - VOMITING [None]
